FAERS Safety Report 19188635 (Version 1)
Quarter: 2021Q2

REPORT INFORMATION
  Report Type: Spontaneous
  Country: PL (occurrence: PL)
  Receive Date: 20210428
  Receipt Date: 20210428
  Transmission Date: 20210717
  Serious: Yes (Other)
  Sender: FDA-Public Use
  Company Number: PL-LUPIN PHARMACEUTICALS INC.-2021-05709

PATIENT
  Age: 52 Year
  Sex: Female

DRUGS (2)
  1. PAROXETINE. [Suspect]
     Active Substance: PAROXETINE
     Indication: DELUSION OF PARASITOSIS
     Dosage: 20 MILLIGRAM, QD
     Route: 065
  2. HALOPERIDOL. [Concomitant]
     Active Substance: HALOPERIDOL
     Indication: DELUSION OF PARASITOSIS
     Dosage: 3 MILLIGRAM, QD
     Route: 065

REACTIONS (1)
  - Therapeutic product effect decreased [Unknown]
